FAERS Safety Report 23705625 (Version 3)
Quarter: 2025Q3

REPORT INFORMATION
  Report Type: Report from Study
  Country: US (occurrence: US)
  Receive Date: 20240404
  Receipt Date: 20250729
  Transmission Date: 20251020
  Serious: Yes (Hospitalization, Other)
  Sender: TAKEDA
  Company Number: US-TAKEDA-2024TUS031198

PATIENT
  Age: 58 Year
  Sex: Female

DRUGS (2)
  1. HUMAN IMMUNOGLOBULIN G [Suspect]
     Active Substance: HUMAN IMMUNOGLOBULIN G
     Indication: Primary immunodeficiency syndrome
  2. HUMAN IMMUNOGLOBULIN G [Suspect]
     Active Substance: HUMAN IMMUNOGLOBULIN G
     Indication: Immunodeficiency common variable

REACTIONS (13)
  - Sepsis [Unknown]
  - Pyelonephritis [Unknown]
  - Vision blurred [Unknown]
  - Visual impairment [Unknown]
  - COVID-19 [Unknown]
  - Limb injury [Unknown]
  - Blood lactic acid abnormal [Unknown]
  - Influenza [Unknown]
  - Angioedema [Unknown]
  - Pain [Unknown]
  - Pyrexia [Unknown]
  - Tremor [Unknown]
  - Headache [Unknown]

NARRATIVE: CASE EVENT DATE: 20230501
